FAERS Safety Report 10476582 (Version 1)
Quarter: 2014Q3

REPORT INFORMATION
  Report Type: Spontaneous
  Country: US (occurrence: None)
  Receive Date: 20140923
  Receipt Date: 20140923
  Transmission Date: 20150326
  Serious: Yes (Hospitalization, Other)
  Sender: FDA-Public Use
  Company Number: 2010S1004279

PATIENT
  Age: 70 Year
  Sex: Female

DRUGS (5)
  1. LOVASTATIN. [Concomitant]
     Active Substance: LOVASTATIN
  2. PHOSPHO-SODA [Suspect]
     Active Substance: SODIUM PHOSPHATE, DIBASIC\SODIUM PHOSPHATE, MONOBASIC
     Indication: COLONOSCOPY
     Route: 048
     Dates: start: 20060310
  3. ZYRTEC [Concomitant]
     Active Substance: CETIRIZINE HYDROCHLORIDE
  4. BENICAR [Concomitant]
     Active Substance: OLMESARTAN MEDOXOMIL
  5. ACTONEL (RISEDRONATE SODIUM) [Concomitant]

REACTIONS (9)
  - Renal failure acute [None]
  - Oesophagitis [None]
  - Pyrexia [None]
  - Decreased appetite [None]
  - Renal failure chronic [None]
  - Renal tubular disorder [None]
  - Nephrogenic anaemia [None]
  - Injury [None]
  - Fatigue [None]

NARRATIVE: CASE EVENT DATE: 200603
